FAERS Safety Report 15419005 (Version 1)
Quarter: 2018Q3

REPORT INFORMATION
  Report Type: Spontaneous
  Country: US (occurrence: US)
  Receive Date: 20180924
  Receipt Date: 20180924
  Transmission Date: 20181010
  Serious: Yes (Hospitalization)
  Sender: FDA-Public Use
  Company Number: US-JNJFOC-20180926336

PATIENT
  Age: 64 Year
  Sex: Male

DRUGS (1)
  1. INVOKANA [Suspect]
     Active Substance: CANAGLIFLOZIN
     Indication: TYPE 2 DIABETES MELLITUS
     Dosage: IN VARYING DOSE OF 100 AND 300 MG
     Route: 048
     Dates: start: 20140929

REACTIONS (8)
  - Cellulitis [Recovering/Resolving]
  - Acute kidney injury [Recovered/Resolved]
  - Metatarsal excision [Unknown]
  - Osteomyelitis [Recovering/Resolving]
  - Diabetic foot [Recovering/Resolving]
  - Postoperative wound infection [Recovering/Resolving]
  - Weight decreased [Unknown]
  - Toe amputation [Unknown]

NARRATIVE: CASE EVENT DATE: 2015
